FAERS Safety Report 12850979 (Version 1)
Quarter: 2016Q4

REPORT INFORMATION
  Report Type: Spontaneous
  Country: DE (occurrence: DE)
  Receive Date: 20161015
  Receipt Date: 20161015
  Transmission Date: 20170207
  Serious: Yes (Hospitalization, Other)
  Sender: FDA-Public Use
  Company Number: DE-SCIEGEN PHARMACEUTICALS INC-2016SCILIT00478

PATIENT
  Age: 76 Year
  Sex: Female

DRUGS (2)
  1. CLOPIDOGREL [Suspect]
     Active Substance: CLOPIDOGREL BISULFATE
     Indication: PERIPHERAL ARTERIAL OCCLUSIVE DISEASE
     Dosage: UNK
     Route: 065
  2. ACETYLSALICYLIC ACID [Suspect]
     Active Substance: ASPIRIN
     Indication: PERIPHERAL ARTERIAL OCCLUSIVE DISEASE
     Dosage: UNK
     Route: 065

REACTIONS (20)
  - Corneal oedema [Unknown]
  - Visual acuity reduced [Recovering/Resolving]
  - Eye movement disorder [Unknown]
  - Corneal erosion [Unknown]
  - Corneal disorder [None]
  - Vitreous haemorrhage [Unknown]
  - Cataract [Unknown]
  - Conjunctival haemorrhage [Unknown]
  - Choroidal haemorrhage [Unknown]
  - Eyelid haematoma [Unknown]
  - Exophthalmos [Unknown]
  - Optic atrophy [Unknown]
  - Strabismus [Unknown]
  - Disorder of globe [Unknown]
  - Wound haemorrhage [Unknown]
  - Conjunctival oedema [Unknown]
  - Procedural haemorrhage [Unknown]
  - Hyphaema [Unknown]
  - Ocular retrobulbar haemorrhage [Unknown]
  - Intraocular haematoma [Unknown]
